FAERS Safety Report 8096940-5 (Version None)
Quarter: 2012Q1

REPORT INFORMATION
  Report Type: 
  Country: None (occurrence: None)
  Receive Date: 20120129
  Receipt Date: 20111230
  Transmission Date: 20120608
  Serious: No
  Sender: FDA-Public Use
  Company Number: US-ABBOTT-11P-163-0842893-00

PATIENT

DRUGS (2)
  1. HUMIRA [Suspect]
  2. HUMIRA [Suspect]
     Indication: PRODUCT USED FOR UNKNOWN INDICATION
     Dosage: 3 INJECTIONS

REACTIONS (7)
  - CONDITION AGGRAVATED [None]
  - SKIN BURNING SENSATION [None]
  - INJECTION SITE REACTION [None]
  - ANAEMIA [None]
  - RASH [None]
  - PARAESTHESIA ORAL [None]
  - VITAMIN B12 DECREASED [None]
